FAERS Safety Report 20099371 (Version 1)
Quarter: 2021Q4

REPORT INFORMATION
  Report Type: Spontaneous
  Country: US (occurrence: US)
  Receive Date: 20211122
  Receipt Date: 20211122
  Transmission Date: 20220304
  Serious: Yes (Other)
  Sender: FDA-Public Use
  Company Number: US-LUNDBECK-DKLU3041263

PATIENT
  Age: 13 Month
  Sex: Female
  Weight: 7.48 kg

DRUGS (6)
  1. SABRIL [Suspect]
     Active Substance: VIGABATRIN
     Indication: Infantile spasms
     Route: 048
  2. SABRIL [Suspect]
     Active Substance: VIGABATRIN
     Indication: Status epilepticus
  3. SIMETHICONE (DIMETHICONE) [Concomitant]
     Active Substance: DIMETHICONE
     Indication: Product used for unknown indication
     Route: 065
  4. NEXIUM [Concomitant]
     Active Substance: ESOMEPRAZOLE MAGNESIUM
     Indication: Product used for unknown indication
     Route: 065
  5. KEPPRA [Concomitant]
     Active Substance: LEVETIRACETAM
     Indication: Product used for unknown indication
     Dosage: 100 MG/ML
     Route: 065
  6. DIAZEPAM [Concomitant]
     Active Substance: DIAZEPAM
     Indication: Product used for unknown indication
     Route: 065

REACTIONS (2)
  - Drug withdrawal convulsions [Unknown]
  - Product dose omission issue [Unknown]
